FAERS Safety Report 7882562-5 (Version None)
Quarter: 2011Q4

REPORT INFORMATION
  Report Type: 
  Country: None (occurrence: None)
  Receive Date: 20111101
  Receipt Date: 20110616
  Transmission Date: 20120403
  Serious: Yes (Hospitalization)
  Sender: FDA-Public Use
  Company Number: US-AMGEN-USASP2011030927

PATIENT
  Age: 57 Year
  Sex: Male
  Weight: 86.168 kg

DRUGS (5)
  1. PREDNISONE [Concomitant]
     Dosage: 1 MG, UNK
  2. ZYFLO [Concomitant]
     Dosage: 600 MG, UNK
  3. ADVAIR DISKUS 100/50 [Concomitant]
  4. SPIRIVA [Concomitant]
  5. ENBREL [Suspect]
     Indication: PRODUCT USED FOR UNKNOWN INDICATION
     Dosage: 50 MG, QWK

REACTIONS (1)
  - PNEUMONIA [None]
